APPROVED DRUG PRODUCT: ACETAMINOPHEN AND CODEINE PHOSPHATE
Active Ingredient: ACETAMINOPHEN; CODEINE PHOSPHATE
Strength: 300MG;30MG
Dosage Form/Route: TABLET;ORAL
Application: A087762 | Product #001
Applicant: PURACAP PHARMACEUTICAL LLC
Approved: Dec 10, 1982 | RLD: No | RS: No | Type: DISCN